FAERS Safety Report 6632696-8 (Version None)
Quarter: 2010Q1

REPORT INFORMATION
  Report Type: 
  Country: None (occurrence: None)
  Receive Date: 20100310
  Receipt Date: 20100226
  Transmission Date: 20100710
  Serious: Yes (Hospitalization)
  Sender: FDA-Public Use
  Company Number: 008232

PATIENT
  Sex: Male
  Weight: 79.5 kg

DRUGS (21)
  1. CERTOLIZUMAB PEGOL [Suspect]
     Indication: RHEUMATOID ARTHRITIS
     Dosage: (200 MG 1X/2 WEEKS SUBCUTANEOUS)
     Route: 058
     Dates: start: 20091101
  2. SULFASALAZINE [Concomitant]
  3. OXYCODONE [Concomitant]
  4. PREDNISONE TAB [Concomitant]
  5. IPRATROPIUM [Concomitant]
  6. EQUATE /00002701/ [Concomitant]
  7. MUCINEX D [Concomitant]
  8. AZITHROMYCIN [Concomitant]
  9. KLOR-CON [Concomitant]
  10. NITROGLYCERIN [Concomitant]
  11. ASPIRIN /01428701/ [Concomitant]
  12. AMBIEN CR [Concomitant]
  13. ONDANSETRON [Concomitant]
  14. FUROSEMIDE [Concomitant]
  15. WARFARIN SODIUM [Concomitant]
  16. ALENDRONAT [Concomitant]
  17. FOLIC ACID [Concomitant]
  18. CYCLOBENZAPRINE [Concomitant]
  19. SOTALOL HCL [Concomitant]
  20. VITAMIN D [Concomitant]
  21. VENLAFAXINE [Concomitant]

REACTIONS (1)
  - PNEUMONIA STREPTOCOCCAL [None]
